FAERS Safety Report 25386465 (Version 1)
Quarter: 2025Q2

REPORT INFORMATION
  Report Type: Spontaneous
  Country: US (occurrence: None)
  Receive Date: 20250530
  Receipt Date: 20250530
  Transmission Date: 20250716
  Serious: No
  Sender: FDA-CTU
  Company Number: None

PATIENT

DRUGS (2)
  1. SODIUM CHLORIDE FOR IRRIGATION [Suspect]
     Active Substance: SODIUM CHLORIDE
  2. SODIUM CHLORIDE FOR IRRIGATION [Concomitant]
     Active Substance: SODIUM CHLORIDE

REACTIONS (1)
  - Intercepted product selection error [None]

NARRATIVE: CASE EVENT DATE: 20250515
